FAERS Safety Report 11716228 (Version 2)
Quarter: 2015Q4

REPORT INFORMATION
  Report Type: Spontaneous
  Country: US (occurrence: US)
  Receive Date: 20151104
  Receipt Date: 20151110
  Transmission Date: 20160304
  Serious: No
  Sender: FDA-Public Use
  Company Number: US-ELI_LILLY_AND_COMPANY-US201103007039

PATIENT
  Age: 69 Year
  Sex: Male

DRUGS (5)
  1. FORTEO [Suspect]
     Active Substance: TERIPARATIDE
     Dosage: 20 UG, QD
  2. FORTEO [Suspect]
     Active Substance: TERIPARATIDE
     Dosage: 20 UG, QD
  3. FORTEO [Suspect]
     Active Substance: TERIPARATIDE
     Dosage: 20 UG, QD
     Route: 065
     Dates: end: 201108
  4. FORTEO [Suspect]
     Active Substance: TERIPARATIDE
     Indication: OSTEOPOROSIS
     Dosage: 20 UG, QD
     Route: 065
     Dates: start: 201102
  5. FORTEO [Suspect]
     Active Substance: TERIPARATIDE
     Dosage: 20 UG, QOD
     Route: 065

REACTIONS (19)
  - Injection site pain [Unknown]
  - Pain in extremity [Not Recovered/Not Resolved]
  - Asthenia [Unknown]
  - Muscle strain [Unknown]
  - Mobility decreased [Unknown]
  - Arthralgia [Recovered/Resolved]
  - Arthralgia [Not Recovered/Not Resolved]
  - Stress [Unknown]
  - Myalgia [Recovered/Resolved]
  - Pain [Unknown]
  - Muscle spasms [Recovered/Resolved]
  - Blood calcium increased [Unknown]
  - Drug prescribing error [Recovered/Resolved]
  - Sleep disorder due to a general medical condition [Recovered/Resolved]
  - Body height decreased [Unknown]
  - Muscle spasms [Unknown]
  - Muscle disorder [Unknown]
  - Calcium deficiency [Recovering/Resolving]
  - Muscle spasms [Not Recovered/Not Resolved]

NARRATIVE: CASE EVENT DATE: 201104
